FAERS Safety Report 6094803-8 (Version None)
Quarter: 2009Q1

REPORT INFORMATION
  Report Type: 
  Country: None (occurrence: None)
  Receive Date: 20090225
  Receipt Date: 20090213
  Transmission Date: 20090719
  Serious: Yes (Hospitalization)
  Sender: FDA-Public Use
  Company Number: 231364K09USA

PATIENT
  Age: 37 Year
  Sex: Female

DRUGS (4)
  1. REBIF              (INTERFERON BETA) [Suspect]
     Indication: MULTIPLE SCLEROSIS
     Dosage: 44 MCG, 3 IN 1 WEEKS, SUBCUTANEOUS
     Route: 058
     Dates: start: 20070911
  2. IMMUNE GLOBULIN (HUMAN) [Concomitant]
  3. IBUPROFEN [Concomitant]
  4. PROVIGIL [Concomitant]

REACTIONS (5)
  - INFLUENZA LIKE ILLNESS [None]
  - PROCEDURAL COMPLICATION [None]
  - UTERINE DISORDER [None]
  - UTERINE LEIOMYOMA [None]
  - VAGINAL HAEMORRHAGE [None]
